FAERS Safety Report 4677083-7 (Version None)
Quarter: 2005Q2

REPORT INFORMATION
  Report Type: 
  Country: None (occurrence: None)
  Receive Date: 20050525
  Receipt Date: 20050405
  Transmission Date: 20051028
  Serious: No
  Sender: FDA-Public Use
  Company Number: SU-2005-003393

PATIENT
  Age: 31 Year
  Sex: Male
  Weight: 108.8633 kg

DRUGS (4)
  1. BENICAR [Suspect]
     Indication: HYPERTENSION
     Dosage: 20 MG QD PO
     Route: 048
     Dates: start: 20040101
  2. LEXAPRO [Concomitant]
  3. ATIVAN [Concomitant]
  4. SEROQUEL [Concomitant]

REACTIONS (1)
  - DEPRESSION [None]
